FAERS Safety Report 10498631 (Version 5)
Quarter: 2019Q2

REPORT INFORMATION
  Report Type: Spontaneous
  Country: PL (occurrence: PL)
  Receive Date: 20141006
  Receipt Date: 20190516
  Transmission Date: 20190711
  Serious: Yes (Life-Threatening)
  Sender: FDA-Public Use
  Company Number: PHHY2014PL129166

PATIENT
  Age: 34 Year
  Sex: Female
  Weight: 73 kg

DRUGS (10)
  1. KLIMICIN [Concomitant]
     Active Substance: CLINDAMYCIN PHOSPHATE
     Indication: INFLAMMATION
     Dosage: 600 MG, Q8H
     Route: 042
     Dates: start: 20140920, end: 20140925
  2. PAPAVERINE [Concomitant]
     Active Substance: PAPAVERINE
     Indication: UTERINE SPASM
     Dosage: 120 MG, Q8H
     Route: 030
     Dates: start: 20140918, end: 20140924
  3. MAGNEZI SULF. [Concomitant]
     Active Substance: MAGNESIUM SULFATE
     Indication: UTERINE CONTRACTIONS DURING PREGNANCY
     Dosage: 4 G, QD
     Route: 042
     Dates: start: 20140918, end: 20140920
  4. NO-SPA FORTE [Concomitant]
     Active Substance: DROTAVERINE HYDROCHLORIDE
     Indication: UTERINE CONTRACTIONS DURING PREGNANCY
     Dosage: 80 MG, Q8H
     Route: 048
     Dates: start: 20140918, end: 20140925
  5. KLIMICIN [Concomitant]
     Active Substance: CLINDAMYCIN PHOSPHATE
     Indication: INFECTION
  6. AMOKSIKLAV [Suspect]
     Active Substance: AMOXICILLIN\CLAVULANATE POTASSIUM
     Indication: C-REACTIVE PROTEIN INCREASED
  7. CLOTRIMAZOL [Concomitant]
     Active Substance: CLOTRIMAZOLE
     Indication: VAGINAL INFECTION
     Dosage: 1 DF, QD
     Route: 067
     Dates: start: 20140918, end: 20140925
  8. DUPHASTON [Concomitant]
     Active Substance: DYDROGESTERONE
     Indication: UTERINE CONTRACTIONS DURING PREGNANCY
     Dosage: 10 MG, Q8H
     Route: 048
     Dates: start: 20140918, end: 20140925
  9. AMOKSIKLAV [Suspect]
     Active Substance: AMOXICILLIN\CLAVULANATE POTASSIUM
     Indication: FALSE LABOUR
     Dosage: 1.2 G, Q8H
     Route: 042
     Dates: start: 20140918, end: 20140918
  10. AMOKSIKLAV [Suspect]
     Active Substance: AMOXICILLIN\CLAVULANATE POTASSIUM
     Indication: WHITE BLOOD CELL COUNT INCREASED

REACTIONS (13)
  - Generalised erythema [Recovered/Resolved]
  - Escherichia infection [Unknown]
  - Hyperhidrosis [Recovered/Resolved]
  - Respiratory rate decreased [Recovered/Resolved]
  - Blood pressure decreased [Recovered/Resolved]
  - Tachycardia [Recovered/Resolved]
  - Heart rate increased [Recovered/Resolved]
  - Drug hypersensitivity [Recovered/Resolved]
  - Oxygen saturation decreased [Recovered/Resolved]
  - Maternal exposure during pregnancy [Unknown]
  - Abdominal pain upper [Recovered/Resolved]
  - Asthenia [Recovered/Resolved]
  - Pain in extremity [Recovered/Resolved]

NARRATIVE: CASE EVENT DATE: 20140918
